FAERS Safety Report 15906091 (Version 6)
Quarter: 2020Q1

REPORT INFORMATION
  Report Type: Report from Study
  Country: JP (occurrence: JP)
  Receive Date: 20190204
  Receipt Date: 20200206
  Transmission Date: 20200409
  Serious: Yes (Death, Hospitalization)
  Sender: FDA-Public Use
  Company Number: JP-EISAI MEDICAL RESEARCH-EC-2019-051389

PATIENT
  Age: 69 Year
  Sex: Female
  Weight: 68 kg

DRUGS (11)
  1. BETAMETHASONE. [Concomitant]
     Active Substance: BETAMETHASONE
  2. LENVIMA [Suspect]
     Active Substance: LENVATINIB
     Route: 048
     Dates: start: 20180808, end: 20181010
  3. LENVIMA [Suspect]
     Active Substance: LENVATINIB
     Indication: HEPATOCELLULAR CARCINOMA
     Route: 048
     Dates: start: 20180804, end: 20180807
  4. AMLODIPINE [Concomitant]
     Active Substance: AMLODIPINE BESYLATE
     Indication: BLOOD PRESSURE INCREASED
  5. VEMLIDY [Concomitant]
     Active Substance: TENOFOVIR ALAFENAMIDE FUMARATE
  6. LENVIMA [Suspect]
     Active Substance: LENVATINIB
     Route: 048
     Dates: start: 20181011, end: 20190605
  7. CEFTRIAXONE SODIUM HYDRATE [Concomitant]
     Active Substance: CEFTRIAXONE SODIUM
  8. THYRADIN [Concomitant]
     Active Substance: LEVOTHYROXINE
  9. OLMESARTAN [Concomitant]
     Active Substance: OLMESARTAN
  10. LENVIMA [Suspect]
     Active Substance: LENVATINIB
     Route: 048
     Dates: start: 20190606, end: 20190926
  11. TRAMCET [Concomitant]
     Active Substance: ACETAMINOPHEN\TRAMADOL

REACTIONS (3)
  - Proteinuria [Recovering/Resolving]
  - C-reactive protein increased [Recovered/Resolved]
  - Malignant neoplasm progression [Fatal]

NARRATIVE: CASE EVENT DATE: 20180808
